FAERS Safety Report 9512210 (Version 2)
Quarter: 2013Q3

REPORT INFORMATION
  Report Type: Report from Study
  Country: CA (occurrence: CA)
  Receive Date: 20130910
  Receipt Date: 20130910
  Transmission Date: 20140515
  Serious: Yes (Other)
  Sender: FDA-Public Use
  Company Number: PHHY2012CA123288

PATIENT
  Sex: Male

DRUGS (2)
  1. TASIGNA [Suspect]
     Indication: CHRONIC MYELOID LEUKAEMIA
     Dosage: 400 MG, BID
     Route: 048
     Dates: start: 201206
  2. COLCHICINE [Suspect]
     Dosage: UNK
     Dates: start: 20120902

REACTIONS (12)
  - Gout [Recovering/Resolving]
  - Vomiting [Recovered/Resolved]
  - Diarrhoea [Recovered/Resolved]
  - Hiccups [Recovered/Resolved]
  - Fear [Unknown]
  - Eye pain [Unknown]
  - Abdominal pain upper [Unknown]
  - Cough [Unknown]
  - Nasopharyngitis [Unknown]
  - Local swelling [Recovered/Resolved]
  - Pain in extremity [Recovered/Resolved]
  - Malaise [Unknown]
